FAERS Safety Report 23945721 (Version 1)
Quarter: 2024Q2

REPORT INFORMATION
  Report Type: Spontaneous
  Country: CN (occurrence: CN)
  Receive Date: 20240606
  Receipt Date: 20240606
  Transmission Date: 20240716
  Serious: Yes (Hospitalization, Other)
  Sender: FDA-Public Use
  Company Number: CN-SA-SAC20240605000162

PATIENT
  Age: 59 Year
  Sex: Male

DRUGS (3)
  1. ELOXATIN [Suspect]
     Active Substance: OXALIPLATIN
     Indication: Gastric cancer
     Dosage: 220 MG
     Route: 041
     Dates: start: 20240424, end: 20240424
  2. GIMERACIL\OTERACIL\TEGAFUR [Suspect]
     Active Substance: GIMERACIL\OTERACIL POTASSIUM\TEGAFUR
     Indication: Gastric cancer
     Dosage: 40 MG/M2, BID;D1-D14
     Route: 048
     Dates: start: 20240424, end: 20240501
  3. SINTILIMAB [Suspect]
     Active Substance: SINTILIMAB
     Indication: Gastric cancer
     Dosage: 200 MG, QD;D1
     Route: 042
     Dates: start: 20240424, end: 20240424

REACTIONS (5)
  - Skin ulcer [Recovering/Resolving]
  - Skin exfoliation [Recovering/Resolving]
  - Epidermolysis bullosa [Recovering/Resolving]
  - Oral mucosa erosion [Recovering/Resolving]
  - Rash [Recovering/Resolving]

NARRATIVE: CASE EVENT DATE: 20240426
